FAERS Safety Report 5268252-6 (Version None)
Quarter: 2007Q1

REPORT INFORMATION
  Report Type: 
  Country: None (occurrence: None)
  Receive Date: 20070314
  Receipt Date: 20070314
  Transmission Date: 20070707
  Serious: Yes (Other)
  Sender: FDA-Public Use
  Company Number: None

PATIENT
  Age: 53 Year
  Sex: Male
  Weight: 106.5953 kg

DRUGS (10)
  1. RANEXA [Suspect]
     Indication: ANGINA PECTORIS
     Dosage: 500MG ONCE DAILY PO
     Route: 048
     Dates: start: 20060928, end: 20070312
  2. ST. JOHN'S WORT [Concomitant]
  3. VIAGRA [Concomitant]
  4. AVAPRO [Concomitant]
  5. METOPROLOL SUCCINATE [Concomitant]
  6. M.V.I. [Concomitant]
  7. NIACIN [Concomitant]
  8. ASPIRIN [Concomitant]
  9. PRILOSEC OTC [Concomitant]
  10. OMEGA-3 FATTY ACIDS [Concomitant]

REACTIONS (1)
  - ERECTILE DYSFUNCTION [None]
